FAERS Safety Report 5243122-8 (Version None)
Quarter: 2007Q1

REPORT INFORMATION
  Report Type: 
  Country: None (occurrence: None)
  Receive Date: 20070213
  Receipt Date: 20070207
  Transmission Date: 20070707
  Serious: Yes (Hospitalization)
  Sender: FDA-Public Use
  Company Number: S07-SWI-00551-01

PATIENT
  Age: 85 Year
  Sex: Female

DRUGS (10)
  1. ESCITALOPRAM [Suspect]
     Dosage: 20 MG QD PO
     Route: 048
     Dates: start: 20061118, end: 20061212
  2. ESCITALOPRAM [Suspect]
     Dosage: 5 MG QD PO
     Route: 048
     Dates: start: 20060922, end: 20060929
  3. ESCITALOPRAM [Suspect]
     Dosage: 10 MG QD PO
     Route: 048
     Dates: start: 20060930, end: 20061117
  4. RISPERDAL [Suspect]
     Dosage: 3 MG QD PO
     Route: 048
     Dates: start: 20061118, end: 20061211
  5. RISPERDAL [Suspect]
     Dosage: 3 MG QD PO
     Route: 048
     Dates: start: 20061213
  6. RISPERDAL [Suspect]
     Dosage: 0.5 MG QD PO
     Route: 048
     Dates: start: 20060905, end: 20060907
  7. RISPERDAL [Suspect]
     Dosage: 1 MG QD PO
     Route: 048
     Dates: start: 20060908, end: 20060913
  8. RISPERDAL [Suspect]
     Dosage: 2 MG QD PO
     Route: 048
     Dates: start: 20060914, end: 20060921
  9. RISPERDAL [Suspect]
     Dosage: 3 MG QD PO
     Route: 048
     Dates: start: 20060923, end: 20060925
  10. RISPERDAL [Suspect]
     Dosage: 4 MG QD PO
     Route: 048
     Dates: start: 20060926, end: 20061117

REACTIONS (5)
  - ACTIVITIES OF DAILY LIVING IMPAIRED [None]
  - ASTHENIA [None]
  - BALANCE DISORDER [None]
  - SEDATION [None]
  - SOMNOLENCE [None]
